FAERS Safety Report 4459243-3 (Version None)
Quarter: 2004Q3

REPORT INFORMATION
  Report Type: 
  Country: None (occurrence: None)
  Receive Date: 20040920
  Receipt Date: 20040920
  Transmission Date: 20050211
  Serious: Yes (Hospitalization)
  Sender: FDA-Public Use
  Company Number: None

PATIENT
  Age: 46 Year
  Sex: Female

DRUGS (6)
  1. INSULIN [Suspect]
     Indication: DIABETES MELLITUS
  2. LANSOPRAZOLE [Concomitant]
  3. DOCUSATE [Concomitant]
  4. NIFEDIPINE [Concomitant]
  5. LISINOPRIL [Concomitant]
  6. LEVOTHYROXINE SODIUM [Concomitant]

REACTIONS (4)
  - BLOOD GLUCOSE INCREASED [None]
  - MARKEDLY REDUCED DIETARY INTAKE [None]
  - URINE KETONE BODY PRESENT [None]
  - VOMITING [None]
